FAERS Safety Report 12383096 (Version 1)
Quarter: 2016Q2

REPORT INFORMATION
  Report Type: Spontaneous
  Country: NL (occurrence: NL)
  Receive Date: 20160518
  Receipt Date: 20160518
  Transmission Date: 20160815
  Serious: Yes (Death)
  Sender: FDA-Public Use
  Company Number: NL-BAYER-2016-086912

PATIENT
  Age: 87 Year
  Sex: Female
  Weight: 70 kg

DRUGS (3)
  1. PARACETAMOL [Interacting]
     Active Substance: ACETAMINOPHEN
     Indication: NEURALGIA
     Route: 048
     Dates: start: 2005
  2. GABAPENTIN. [Interacting]
     Active Substance: GABAPENTIN
     Indication: NEURALGIA
     Dosage: 100 MG, BID
     Route: 048
     Dates: start: 2005
  3. ALEVE [Suspect]
     Active Substance: NAPROXEN SODIUM
     Indication: NEURALGIA
     Route: 048
     Dates: start: 2005

REACTIONS (3)
  - Cerebral haemorrhage [Fatal]
  - Traumatic haematoma [None]
  - Drug interaction [None]

NARRATIVE: CASE EVENT DATE: 20050101
